FAERS Safety Report 24531099 (Version 3)
Quarter: 2025Q3

REPORT INFORMATION
  Report Type: Spontaneous
  Country: EU (occurrence: EU)
  Receive Date: 20241022
  Receipt Date: 20250717
  Transmission Date: 20251021
  Serious: Yes (Hospitalization, Other)
  Sender: NOVEN
  Company Number: EU-NOVEN PHARMACEUTICALS, INC.-2024-NOV-FR001374

PATIENT
  Age: 74 Year
  Sex: Female

DRUGS (1)
  1. DEXTROAMPHETAMINE [Suspect]
     Active Substance: DEXTROAMPHETAMINE
     Indication: Narcolepsy
     Route: 065

REACTIONS (2)
  - Dementia with Lewy bodies [Recovered/Resolved]
  - Drug abuse [Unknown]
